FAERS Safety Report 5160298-1 (Version None)
Quarter: 2006Q4

REPORT INFORMATION
  Report Type: 
  Country: None (occurrence: None)
  Receive Date: 20061129
  Receipt Date: 20061123
  Transmission Date: 20070319
  Serious: Yes (Other)
  Sender: FDA-Public Use
  Company Number: NL-GLAXOSMITHKLINE-B0448461A

PATIENT
  Sex: Male

DRUGS (2)
  1. DUTASTERIDE [Suspect]
  2. CLOBETASOL PROPIONATE [Suspect]
     Indication: GENITAL PRURITUS MALE

REACTIONS (1)
  - URINARY INCONTINENCE [None]
